FAERS Safety Report 5446299-4 (Version None)
Quarter: 2007Q3

REPORT INFORMATION
  Report Type: 
  Country: None (occurrence: None)
  Receive Date: 20070731
  Receipt Date: 20070619
  Transmission Date: 20080115
  Serious: No
  Sender: FDA-Public Use
  Company Number: US200706004612

PATIENT
  Sex: Female

DRUGS (2)
  1. BYETTA [Suspect]
     Dosage: 10 UG,
  2. EXENATIDE 10MCG PEN DISPOSABLE DEVICE [Concomitant]

REACTIONS (2)
  - FALL [None]
  - LIMB INJURY [None]
